FAERS Safety Report 8700075 (Version 2)
Quarter: 2012Q4

REPORT INFORMATION
  Report Type: 
  Country: CA (occurrence: CA)
  Receive Date: 20120802
  Receipt Date: 20121111
  Transmission Date: 20130627
  Serious: Yes (Hospitalization, Other)
  Sender: FDA-Public Use
  Company Number: PHHO2005CA05574

PATIENT
  Sex: Female

DRUGS (4)
  1. SANDOSTATIN LAR (PATIENT BASIS) [Suspect]
     Indication: CARCINOID TUMOUR
     Dosage: 40 mg, every 3 weeks
     Route: 030
     Dates: start: 20040826
  2. DIAMICRON [Concomitant]
  3. VITAMIN B12 [Concomitant]
  4. SYNTHROID [Concomitant]

REACTIONS (20)
  - Gastrointestinal disorder [Unknown]
  - Nausea [Unknown]
  - Fatigue [Unknown]
  - Heart rate decreased [Unknown]
  - Incisional hernia [Unknown]
  - Pain [Unknown]
  - Pyrexia [Unknown]
  - Procedural nausea [Not Recovered/Not Resolved]
  - Hot flush [Unknown]
  - Bone pain [Unknown]
  - Procedural pain [Not Recovered/Not Resolved]
  - Dizziness [Unknown]
  - Hyperglycaemia [Unknown]
  - Hypoglycaemia [Unknown]
  - Hyperhidrosis [Unknown]
  - Depression [Unknown]
  - Arthralgia [Unknown]
  - Pain in extremity [Unknown]
  - Impatience [Unknown]
  - Myalgia [Unknown]
